FAERS Safety Report 25510914 (Version 1)
Quarter: 2025Q3

REPORT INFORMATION
  Report Type: Spontaneous
  Country: US (occurrence: US)
  Receive Date: 20250703
  Receipt Date: 20250703
  Transmission Date: 20251020
  Serious: No
  Sender: CIPLA
  Company Number: US-CIPLA LTD.-2025US07952

PATIENT

DRUGS (3)
  1. DICLOFENAC [Suspect]
     Active Substance: DICLOFENAC
     Indication: Rotator cuff syndrome
     Route: 065
  2. DICLOFENAC [Suspect]
     Active Substance: DICLOFENAC
     Indication: Limb injury
  3. DICLOFENAC [Suspect]
     Active Substance: DICLOFENAC
     Indication: Rotator cuff injury of hip

REACTIONS (1)
  - Off label use [Unknown]
